FAERS Safety Report 5202707-5 (Version None)
Quarter: 2007Q1

REPORT INFORMATION
  Report Type: 
  Country: None (occurrence: None)
  Receive Date: 20070109
  Receipt Date: 20070102
  Transmission Date: 20070707
  Serious: Yes (Other)
  Sender: FDA-Public Use
  Company Number: US-PFIZER INC-2007000893

PATIENT
  Age: 55 Year
  Sex: Female

DRUGS (7)
  1. DOXORUBICIN HYDROCHLORIDE POWDER, STERILE [Suspect]
     Indication: BREAST CANCER
     Route: 042
  2. CYCLOPHOSPHAMIDE [Suspect]
     Indication: BREAST CANCER
     Route: 048
  3. VINCRISTINE [Concomitant]
     Indication: BREAST CANCER
     Route: 042
  4. METHOTREXATE [Concomitant]
     Indication: BREAST CANCER
     Route: 042
  5. FLUOROURACIL [Concomitant]
     Indication: BREAST CANCER
     Route: 042
  6. FLUOROURACIL [Concomitant]
     Route: 042
  7. LEUCOVORIN CALCIUM [Concomitant]
     Indication: BREAST CANCER
     Route: 048

REACTIONS (1)
  - LIP AND/OR ORAL CAVITY CANCER [None]
